FAERS Safety Report 24010761 (Version 1)
Quarter: 2024Q2

REPORT INFORMATION
  Report Type: Spontaneous
  Country: ES (occurrence: ES)
  Receive Date: 20240625
  Receipt Date: 20240625
  Transmission Date: 20240716
  Serious: Yes (Other)
  Sender: FDA-Public Use
  Company Number: None

PATIENT
  Age: 90 Year
  Sex: Male

DRUGS (4)
  1. LINEZOLID [Suspect]
     Active Substance: LINEZOLID
     Dosage: 600 MG, SINGLE
     Route: 048
     Dates: start: 20240505, end: 20240505
  2. PREGABALIN [Suspect]
     Active Substance: PREGABALIN
     Dosage: 75 MG, SINGLE
     Route: 048
     Dates: start: 20240505, end: 20240505
  3. QUETIAPINE [Suspect]
     Active Substance: QUETIAPINE
     Dosage: 25 MG, SINGLE
     Route: 048
     Dates: start: 20240505, end: 20240505
  4. TAMSULOSIN [Suspect]
     Active Substance: TAMSULOSIN
     Dosage: 0.4 MG, SINGLE
     Route: 048
     Dates: start: 20240505, end: 20240505

REACTIONS (2)
  - Wrong patient [Recovered/Resolved]
  - Confusional state [Recovered/Resolved]

NARRATIVE: CASE EVENT DATE: 20240505
